FAERS Safety Report 19470444 (Version 1)
Quarter: 2021Q2

REPORT INFORMATION
  Report Type: Other
  Country: US (occurrence: US)
  Receive Date: 20210629
  Receipt Date: 20210629
  Transmission Date: 20210717
  Serious: No
  Sender: FDA-Public Use
  Company Number: US-EPICPHARMA-2020EPC00271

PATIENT

DRUGS (1)
  1. DEXTROAMPHET SACCHARAT, AMPHET ASPARTATE, DEXTROAMPHET SULFATE AND AMPHET SULFAT [Suspect]
     Active Substance: AMPHETAMINE ASPARTATE\AMPHETAMINE SULFATE\DEXTROAMPHETAMINE SACCHARATE\DEXTROAMPHETAMINE SULFATE
     Dosage: DAILY

REACTIONS (7)
  - Abdominal pain upper [Unknown]
  - Hyperhidrosis [Unknown]
  - Unevaluable event [Unknown]
  - Road traffic accident [Recovered/Resolved]
  - Panic attack [Unknown]
  - Disturbance in attention [Unknown]
  - Dry mouth [Unknown]
